FAERS Safety Report 8000123-4 (Version None)
Quarter: 2011Q4

REPORT INFORMATION
  Report Type: 
  Country: None (occurrence: None)
  Receive Date: 20111220
  Receipt Date: 20111220
  Transmission Date: 20120403
  Serious: No
  Sender: FDA-Public Use
  Company Number: None

PATIENT
  Age: 59 Year
  Sex: Female
  Weight: 61.2356 kg

DRUGS (1)
  1. DEPAKOTE ER [Suspect]
     Indication: FACIAL SPASM
     Dosage: 500 MG ORAL
     Route: 048

REACTIONS (3)
  - FALL [None]
  - DIZZINESS [None]
  - BALANCE DISORDER [None]
